FAERS Safety Report 5076269-X (Version None)
Quarter: 2006Q3

REPORT INFORMATION
  Report Type: 
  Country: None (occurrence: None)
  Receive Date: 20060804
  Receipt Date: 20060803
  Transmission Date: 20061208
  Serious: Yes (Death)
  Sender: FDA-Public Use
  Company Number: 218999

PATIENT
  Sex: Male

DRUGS (5)
  1. MABTHERA                                   (RITUXIMAB) [Suspect]
     Indication: CASTLEMAN'S DISEASE
     Dosage: 375 MG/M2, 4/WEEK
  2. VINBLASTINE SULFATE [Concomitant]
  3. EFAVIRENZ [Concomitant]
  4. AMPRENAVIR                (AMPRENAVIR) [Concomitant]
  5. LOPINAVIR              (LOPINAVIR) [Concomitant]

REACTIONS (16)
  - ACUTE RESPIRATORY DISTRESS SYNDROME [None]
  - AUTOIMMUNE NEUTROPENIA [None]
  - CASTLEMAN'S DISEASE [None]
  - CONDITION AGGRAVATED [None]
  - CYCLIC NEUTROPENIA [None]
  - DRUG INTERACTION [None]
  - HISTIOCYTOSIS HAEMATOPHAGIC [None]
  - HUMORAL IMMUNE DEFECT [None]
  - HYPOXIA [None]
  - LACTIC ACIDOSIS [None]
  - MULTI-ORGAN DISORDER [None]
  - MYELOCYTOSIS [None]
  - NEUTROPHIL COUNT INCREASED [None]
  - PLASMACYTOSIS [None]
  - THERAPY NON-RESPONDER [None]
  - WHITE BLOOD CELL COUNT INCREASED [None]
